FAERS Safety Report 12527281 (Version 1)
Quarter: 2016Q3

REPORT INFORMATION
  Report Type: Spontaneous
  Country: US (occurrence: US)
  Receive Date: 20160705
  Receipt Date: 20160705
  Transmission Date: 20161109
  Serious: No
  Sender: FDA-Public Use
  Company Number: US-TEVA-671848USA

PATIENT
  Sex: Male

DRUGS (4)
  1. NEXIUM [Concomitant]
     Active Substance: ESOMEPRAZOLE MAGNESIUM
  2. COPAXONE [Suspect]
     Active Substance: GLATIRAMER ACETATE
     Indication: MULTIPLE SCLEROSIS
     Route: 058
     Dates: start: 201601
  3. LISINOPRIL. [Concomitant]
     Active Substance: LISINOPRIL
  4. NADOLOL. [Concomitant]
     Active Substance: NADOLOL

REACTIONS (1)
  - Depression [Unknown]
